FAERS Safety Report 16041536 (Version 1)
Quarter: 2019Q1

REPORT INFORMATION
  Report Type: Spontaneous
  Country: US (occurrence: US)
  Receive Date: 20190306
  Receipt Date: 20190306
  Transmission Date: 20190418
  Serious: No
  Sender: FDA-Public Use
  Company Number: US-AKORN PHARMACEUTICALS-2018AKN01951

PATIENT
  Age: 18 Year
  Sex: Female

DRUGS (2)
  1. UNSPECIFIED ORAL CONTRACEPTIVE PILL [Concomitant]
     Dosage: UNK
     Dates: start: 201805
  2. MYORISAN [Suspect]
     Active Substance: ISOTRETINOIN
     Indication: ACNE
     Dosage: 40 MG, 1X/DAY
     Route: 048
     Dates: start: 20181103, end: 20181126

REACTIONS (2)
  - Off label use [Recovered/Resolved]
  - Visual impairment [Unknown]

NARRATIVE: CASE EVENT DATE: 201811
